FAERS Safety Report 14432302 (Version 1)
Quarter: 2018Q1

REPORT INFORMATION
  Report Type: Report from Study
  Country: ES (occurrence: ES)
  Receive Date: 20180124
  Receipt Date: 20180124
  Transmission Date: 20180509
  Serious: Yes (Hospitalization)
  Sender: FDA-Public Use
  Company Number: ES-PFIZER INC-2018027344

PATIENT
  Age: 78 Year
  Sex: Male

DRUGS (6)
  1. FUROSEMIDE. [Concomitant]
     Active Substance: FUROSEMIDE
     Indication: CARDIAC FAILURE
     Dosage: 80 MG, 1X/DAY
     Route: 048
     Dates: start: 201202
  2. ABSTRAL [Concomitant]
     Active Substance: FENTANYL CITRATE
     Indication: PAIN
     Dosage: 100 UG, 1X/DAY
     Route: 048
     Dates: start: 201510
  3. ALDACTONE [Suspect]
     Active Substance: SPIRONOLACTONE
     Indication: CARDIAC FAILURE
     Dosage: 25 MG, 1X/DAY
     Route: 048
     Dates: start: 201512, end: 20160208
  4. NOLOTIL /06276702/ [Interacting]
     Active Substance: METAMIZOLE MAGNESIUM
     Indication: PAIN
     Dosage: 575 MG, 3X/DAY
     Route: 048
     Dates: start: 201601, end: 20160208
  5. OLMESARTAN ALTER [Interacting]
     Active Substance: OLMESARTAN MEDOXOMIL
     Indication: CARDIAC FAILURE
     Dosage: 40 MG, 1X/DAY
     Route: 048
     Dates: start: 201406
  6. ALLOPURINOL. [Concomitant]
     Active Substance: ALLOPURINOL
     Indication: HYPERURICAEMIA
     Dosage: 100 MG, 1X/DAY
     Route: 048
     Dates: start: 201202, end: 20160208

REACTIONS (2)
  - Acute kidney injury [Recovered/Resolved]
  - Drug interaction [Recovered/Resolved]

NARRATIVE: CASE EVENT DATE: 201602
